FAERS Safety Report 4894112-6 (Version None)
Quarter: 2006Q1

REPORT INFORMATION
  Report Type: 
  Country: None (occurrence: None)
  Receive Date: 20060127
  Receipt Date: 20050802
  Transmission Date: 20060701
  Serious: No
  Sender: FDA-Public Use
  Company Number: US-GLAXOSMITHKLINE-A0568623A

PATIENT
  Age: 52 Year
  Sex: Female

DRUGS (9)
  1. WELLBUTRIN [Suspect]
     Indication: DEPRESSION
     Dosage: 150MG THREE TIMES PER DAY
     Route: 048
  2. WELLBUTRIN [Suspect]
     Dosage: 150MG TWICE PER DAY
     Route: 048
  3. LEXAPRO [Concomitant]
  4. ALDACTONE [Concomitant]
  5. LEVOTHROID [Concomitant]
  6. TOPAMAX [Concomitant]
  7. NEXIUM [Concomitant]
  8. ARIMIDEX [Concomitant]
  9. TEQUIN [Concomitant]

REACTIONS (2)
  - DEPRESSION [None]
  - DRUG INEFFECTIVE [None]
